FAERS Safety Report 25914131 (Version 6)
Quarter: 2025Q4

REPORT INFORMATION
  Report Type: Report from Study
  Country: US (occurrence: US)
  Receive Date: 20251013
  Receipt Date: 20251229
  Transmission Date: 20260118
  Serious: Yes (Hospitalization, Other)
  Sender: PFIZER
  Company Number: US-PFIZER INC-PV202400144034

PATIENT
  Age: 65 Year
  Sex: Female
  Weight: 70.295 kg

DRUGS (8)
  1. TIKOSYN [Suspect]
     Active Substance: DOFETILIDE
     Indication: Atrial fibrillation
     Dosage: TAKE TWO DIFFERENT DOSES THE 125 AND 250 TWICE DAY
     Dates: start: 2011
  2. TIKOSYN [Suspect]
     Active Substance: DOFETILIDE
     Dosage: 0.125 MG AND TIKOSYN 0.250 MG
  3. TIKOSYN [Suspect]
     Active Substance: DOFETILIDE
     Dosage: 125 MCG AND 250 MCG TWICE A DAY BOTH MEDS
  4. TIKOSYN [Suspect]
     Active Substance: DOFETILIDE
     Dosage: UNK (250MCG ORANGE CAPSULES, PLAIN LIKE LIGHT CREAM COLOR ORANGE)
  5. TIKOSYN [Suspect]
     Active Substance: DOFETILIDE
     Dosage: TAKES 1, 125MCG CAPSULE, 1 IN MORNING AND 1 250MCG, AT NIGHT, BEFORE BED
  6. TIKOSYN [Suspect]
     Active Substance: DOFETILIDE
     Dosage: 125 UG, 2X/DAY
     Route: 048
     Dates: start: 20180115
  7. TIKOSYN [Suspect]
     Active Substance: DOFETILIDE
     Dosage: 250 UG, 2X/DAY
     Route: 048
     Dates: start: 20230622
  8. TIKOSYN [Suspect]
     Active Substance: DOFETILIDE
     Dosage: TAKE BOTH TWICE A DAY

REACTIONS (1)
  - Left atrial appendage closure implant [Unknown]

NARRATIVE: CASE EVENT DATE: 20201207
